FAERS Safety Report 11201573 (Version 1)
Quarter: 2015Q2

REPORT INFORMATION
  Report Type: Spontaneous
  Country: US (occurrence: None)
  Receive Date: 20150608
  Receipt Date: 20150608
  Transmission Date: 20150821
  Serious: No
  Sender: FDA-Public Use
  Company Number: 2015TUS000169

PATIENT
  Age: 15 Year
  Sex: Male
  Weight: 49.9 kg

DRUGS (1)
  1. BRINTELLIX [Suspect]
     Active Substance: VORTIOXETINE HYDROBROMIDE
     Indication: DEPRESSION
     Dosage: 10 MG, UNK, ORAL
     Route: 048

REACTIONS (6)
  - Diarrhoea [None]
  - Off label use [None]
  - Feeling abnormal [None]
  - Vomiting [None]
  - Nausea [None]
  - Intentional overdose [None]
